FAERS Safety Report 16794252 (Version 1)
Quarter: 2019Q3

REPORT INFORMATION
  Report Type: Spontaneous
  Country: US (occurrence: US)
  Receive Date: 20190911
  Receipt Date: 20190911
  Transmission Date: 20191005
  Serious: Yes (Life-Threatening, Hospitalization)
  Sender: FDA-Public Use
  Company Number: US-SUN PHARMACEUTICAL INDUSTRIES LTD-2019R1-219782

PATIENT
  Age: 22 Year
  Sex: Female

DRUGS (1)
  1. BUPROPION. [Suspect]
     Active Substance: BUPROPION
     Indication: PRODUCT USED FOR UNKNOWN INDICATION
     Dosage: 40.5 G
     Route: 048

REACTIONS (2)
  - Generalised tonic-clonic seizure [Recovering/Resolving]
  - Intentional overdose [Recovering/Resolving]
